FAERS Safety Report 11800305 (Version 1)
Quarter: 2015Q4

REPORT INFORMATION
  Report Type: Spontaneous
  Country: US (occurrence: US)
  Receive Date: 20151203
  Receipt Date: 20151203
  Transmission Date: 20160305
  Serious: No
  Sender: FDA-Public Use
  Company Number: US-UCBSA-2015012019

PATIENT
  Age: 58 Year
  Sex: Male

DRUGS (3)
  1. ISOSORBIDE MONONITRATE EXTENDED-RELEASE TABLET USP [Suspect]
     Active Substance: ISOSORBIDE MONONITRATE
     Indication: UNEVALUABLE EVENT
     Dosage: UNKNOWN DOSE
  2. ISOSORBIDE MONONITRATE EXTENDED-RELEASE TABLET USP [Suspect]
     Active Substance: ISOSORBIDE MONONITRATE
     Dosage: 60 MG
     Dates: start: 20141220
  3. ISOSORBIDE MONONITRATE EXTENDED-RELEASE TABLET USP [Suspect]
     Active Substance: ISOSORBIDE MONONITRATE
     Dosage: 120 MG, ONCE DAILY (QD)
     Dates: start: 20150202

REACTIONS (2)
  - Drug ineffective [Unknown]
  - Medication residue present [Not Recovered/Not Resolved]

NARRATIVE: CASE EVENT DATE: 20150202
